FAERS Safety Report 15365854 (Version 1)
Quarter: 2018Q3

REPORT INFORMATION
  Report Type: Spontaneous
  Country: US (occurrence: US)
  Receive Date: 20180831
  Receipt Date: 20180831
  Transmission Date: 20181010
  Serious: Yes (Other)
  Sender: FDA-Public Use
  Company Number: None

PATIENT
  Age: 61 Year
  Sex: Female

DRUGS (16)
  1. METOPROLOL. [Concomitant]
     Active Substance: METOPROLOL
  2. ATROVENT [Concomitant]
     Active Substance: IPRATROPIUM BROMIDE
  3. LASIX [Concomitant]
     Active Substance: FUROSEMIDE
  4. OMEPRAZOLE. [Concomitant]
     Active Substance: OMEPRAZOLE
  5. ONDANSETRON [Concomitant]
     Active Substance: ONDANSETRON
  6. K?TAB [Concomitant]
     Active Substance: POTASSIUM CHLORIDE
  7. CALCIUM WITH VITAMIN D [Concomitant]
     Active Substance: CALCIUM\VITAMIN D
  8. URSODIOL. [Concomitant]
     Active Substance: URSODIOL
  9. ATORVASTATIN [Concomitant]
     Active Substance: ATORVASTATIN
  10. LETAIRIS [Suspect]
     Active Substance: AMBRISENTAN
     Indication: PULMONARY ARTERIAL HYPERTENSION
     Route: 048
     Dates: start: 201407
  11. SILDENAFIL. [Concomitant]
     Active Substance: SILDENAFIL
  12. FERROUS SULFATE. [Concomitant]
     Active Substance: FERROUS SULFATE
  13. NORCO [Concomitant]
     Active Substance: ACETAMINOPHEN\HYDROCODONE BITARTRATE
  14. LOSARTAN. [Concomitant]
     Active Substance: LOSARTAN
  15. LEVOTHYROXINE. [Concomitant]
     Active Substance: LEVOTHYROXINE
  16. DILANTIN [Concomitant]
     Active Substance: PHENYTOIN

REACTIONS (3)
  - Fall [None]
  - Joint injury [None]
  - Seizure [None]

NARRATIVE: CASE EVENT DATE: 20180816
